FAERS Safety Report 9115099 (Version 1)
Quarter: 2013Q1

REPORT INFORMATION
  Report Type: Spontaneous
  Country: US (occurrence: US)
  Receive Date: 20130225
  Receipt Date: 20130225
  Transmission Date: 20140127
  Serious: No
  Sender: FDA-Public Use
  Company Number: US-BAYER-2013-016199

PATIENT
  Age: 44 Year
  Sex: Female

DRUGS (8)
  1. BETASERON [Suspect]
     Indication: RELAPSING-REMITTING MULTIPLE SCLEROSIS
     Dosage: 0.25 MG, QOD
     Route: 058
  2. PLAQUENIL [Concomitant]
     Dosage: 200 MG, UNK
  3. WELLBUTRIN [Concomitant]
     Dosage: 100 MG, UNK
  4. LEXAPRO [Concomitant]
     Dosage: 20 MG, UNK
  5. VITAMIN D [Concomitant]
     Dosage: 1000 UNIT
  6. VITAMIN B12 [Concomitant]
     Dosage: 1000 CR
  7. ALPRAZOLAM [Concomitant]
     Dosage: 0.5 MG, XR
  8. COPAXONE [Concomitant]
     Dosage: 20 MG/ML, UNK

REACTIONS (2)
  - Neutralising antibodies positive [Recovered/Resolved]
  - Drug ineffective [Recovered/Resolved]
